FAERS Safety Report 15362492 (Version 2)
Quarter: 2018Q3

REPORT INFORMATION
  Report Type: Not Available
  Country: US (occurrence: US)
  Receive Date: 20180907
  Receipt Date: 20180924
  Transmission Date: 20181010
  Serious: Yes (Hospitalization)
  Sender: FDA-Public Use
  Company Number: US-NEUROCRINE BIOSCIENCES INC.-2018NBI02672

PATIENT
  Sex: Female

DRUGS (13)
  1. ZANTAC [Concomitant]
     Active Substance: RANITIDINE HYDROCHLORIDE
  2. INGREZZA [Suspect]
     Active Substance: VALBENAZINE
     Indication: PRODUCT USED FOR UNKNOWN INDICATION
     Route: 048
     Dates: start: 20180213, end: 2018
  3. INGREZZA [Suspect]
     Active Substance: VALBENAZINE
     Dates: start: 20180118
  4. DULCOLAX NOS [Concomitant]
     Active Substance: BISACODYL OR DOCUSATE SODIUM
  5. INGREZZA [Suspect]
     Active Substance: VALBENAZINE
     Dates: start: 20180111, end: 20180118
  6. VITAMIN B12 [Concomitant]
     Active Substance: CYANOCOBALAMIN
  7. VITAMIN D3 [Concomitant]
     Active Substance: CHOLECALCIFEROL
  8. MIRALAX [Concomitant]
     Active Substance: POLYETHYLENE GLYCOL 3350
  9. FLUDROCORTISONE ACETATE. [Concomitant]
     Active Substance: FLUDROCORTISONE ACETATE
  10. CLOZAPINE. [Concomitant]
     Active Substance: CLOZAPINE
  11. INGREZZA [Suspect]
     Active Substance: VALBENAZINE
     Route: 048
     Dates: start: 2018
  12. REGULOID [Concomitant]
     Active Substance: PSYLLIUM HUSK
  13. FISH OIL [Concomitant]
     Active Substance: FISH OIL

REACTIONS (2)
  - Confusional state [Unknown]
  - Fall [Unknown]
